FAERS Safety Report 5910647-9 (Version None)
Quarter: 2008Q4

REPORT INFORMATION
  Report Type: 
  Country: None (occurrence: None)
  Receive Date: 20081007
  Receipt Date: 20080925
  Transmission Date: 20090506
  Serious: Yes (Hospitalization)
  Sender: FDA-Public Use
  Company Number: GB-AMGEN-UK227641

PATIENT
  Sex: Male

DRUGS (12)
  1. PANITUMUMAB [Suspect]
     Indication: COLORECTAL CANCER
     Route: 042
     Dates: start: 20070305
  2. INSULIN HUMAN [Concomitant]
     Route: 058
  3. CLEXANE [Concomitant]
     Route: 058
     Dates: start: 20061129
  4. ONDANSETRON [Concomitant]
     Dates: start: 20070305
  5. DEXAMETHASONE [Concomitant]
     Dates: start: 20070305
  6. AVEVA [Concomitant]
     Route: 061
  7. LOPERAMIDE HCL [Concomitant]
     Dates: start: 20070405
  8. DIFFLAM [Concomitant]
     Dates: start: 20070411
  9. CYCLIZINE [Concomitant]
     Route: 048
  10. CHLORAMPHENICOL [Concomitant]
     Dates: start: 20070430, end: 20070509
  11. PREDNISOLONE SODIUM PHOSPHATE [Concomitant]
     Route: 047
     Dates: start: 20070514
  12. CELLUVISC [Concomitant]
     Route: 047
     Dates: start: 20070514

REACTIONS (2)
  - CATHETER RELATED INFECTION [None]
  - PYREXIA [None]
